FAERS Safety Report 11719443 (Version 3)
Quarter: 2017Q2

REPORT INFORMATION
  Report Type: Spontaneous
  Country: CA (occurrence: CA)
  Receive Date: 20151110
  Receipt Date: 20170619
  Transmission Date: 20170829
  Serious: Yes (Hospitalization, Other)
  Sender: FDA-Public Use
  Company Number: CA-BAXTER-2015BAX031043

PATIENT
  Age: 42 Year
  Sex: Female
  Weight: 50 kg

DRUGS (8)
  1. PROCYTOX (CYCLOPHOSPHAMIDE) 2000MG/VIAL [Suspect]
     Active Substance: CYCLOPHOSPHAMIDE
     Indication: DIFFUSE LARGE B-CELL LYMPHOMA
     Dosage: REGIMEN#1
     Route: 042
     Dates: start: 20150331
  2. NEUPOGEN [Suspect]
     Active Substance: FILGRASTIM
     Indication: FEBRILE NEUTROPENIA
     Dosage: DOSE ALSO REPORTED AS 1ML/300 MCG, DOSAGE FORM: SOLUTION FOR INJECTION
     Route: 058
     Dates: start: 20150413, end: 20150416
  3. VINCRISTINE [Suspect]
     Active Substance: VINCRISTINE
     Indication: DIFFUSE LARGE B-CELL LYMPHOMA
     Dosage: REGIMEN#1
     Route: 042
     Dates: start: 20150331
  4. RITUXIMAB [Suspect]
     Active Substance: RITUXIMAB
     Indication: DIFFUSE LARGE B-CELL LYMPHOMA
     Dosage: DOSAGE FORM: SOLUTION FOR INFUSION
     Route: 042
     Dates: start: 20150331
  5. NEUPOGEN [Suspect]
     Active Substance: FILGRASTIM
     Dosage: DOSE RE-INTRODUCED
     Route: 058
  6. NEULASTA [Suspect]
     Active Substance: PEGFILGRASTIM
     Indication: PRODUCT USED FOR UNKNOWN INDICATION
     Dosage: DOSAGE FORM: SOLUTION SUBCUTANEOUS
     Route: 058
  7. PREDNISONE. [Suspect]
     Active Substance: PREDNISONE
     Indication: DIFFUSE LARGE B-CELL LYMPHOMA
     Route: 065
  8. DOXORUBICIN [Suspect]
     Active Substance: DOXORUBICIN
     Indication: DIFFUSE LARGE B-CELL LYMPHOMA
     Dosage: DOSAGE FORM: SOLUTION FOR INJECTION, REGIMEN#1
     Route: 042
     Dates: start: 20150331

REACTIONS (4)
  - Staphylococcal bacteraemia [Recovered/Resolved]
  - Bone pain [Recovered/Resolved]
  - Bone pain [Unknown]
  - Febrile neutropenia [Recovered/Resolved]

NARRATIVE: CASE EVENT DATE: 20150412
